FAERS Safety Report 5961785-6 (Version None)
Quarter: 2008Q4

REPORT INFORMATION
  Report Type: 
  Country: None (occurrence: None)
  Receive Date: 20081121
  Receipt Date: 20081118
  Transmission Date: 20090506
  Serious: Yes (Hospitalization)
  Sender: FDA-Public Use
  Company Number: ES-MERCK-0811ESP00026

PATIENT
  Age: 76 Year
  Sex: Male

DRUGS (5)
  1. FOSAMAX PLUS D [Suspect]
     Route: 048
     Dates: start: 20080101, end: 20080420
  2. ALLOPURINOL [Concomitant]
     Route: 048
  3. OLMESARTAN MEDOXOMIL [Concomitant]
     Route: 048
  4. FUROSEMIDE [Concomitant]
     Route: 048
  5. ACENOCOUMAROL [Suspect]
     Route: 048
     Dates: start: 20060101, end: 20080420

REACTIONS (3)
  - ANAEMIA [None]
  - DRUG INTERACTION [None]
  - GASTRIC HAEMORRHAGE [None]
